FAERS Safety Report 18700787 (Version 1)
Quarter: 2021Q1

REPORT INFORMATION
  Report Type: Report from Study
  Country: US (occurrence: US)
  Receive Date: 20210105
  Receipt Date: 20210105
  Transmission Date: 20210419
  Serious: Yes (Other)
  Sender: FDA-Public Use
  Company Number: US-MYLANLABS-2020M1053125

PATIENT
  Age: 48 Year
  Sex: Female
  Weight: 69 kg

DRUGS (3)
  1. GLATIRAMER ACETATE INJECTION [Suspect]
     Active Substance: GLATIRAMER ACETATE
     Indication: MULTIPLE SCLEROSIS
     Dosage: 40 MILLIGRAM, 3XW, (THREE TIMES PER WEEK)
     Route: 058
     Dates: start: 202005
  2. GLATIRAMER ACETATE INJECTION [Suspect]
     Active Substance: GLATIRAMER ACETATE
     Indication: RELAPSING-REMITTING MULTIPLE SCLEROSIS
     Dosage: 40 MILLIGRAM, Q3W
     Route: 058
  3. GLATIRAMER ACETATE INJECTION [Suspect]
     Active Substance: GLATIRAMER ACETATE
     Dosage: 40 MILLIGRAM, 3XW
     Route: 058

REACTIONS (8)
  - Abdominal pain lower [Recovered/Resolved]
  - Dyspnoea [Recovered/Resolved]
  - Injection site mass [Unknown]
  - Drug ineffective [Unknown]
  - Multiple sclerosis [Unknown]
  - Injection site pain [Recovering/Resolving]
  - Weight increased [Unknown]
  - Injection site haemorrhage [Unknown]

NARRATIVE: CASE EVENT DATE: 202005
